FAERS Safety Report 5399120-7 (Version None)
Quarter: 2007Q3

REPORT INFORMATION
  Report Type: 
  Country: None (occurrence: None)
  Receive Date: 20070725
  Receipt Date: 20070725
  Transmission Date: 20080115
  Serious: Yes (Life-Threatening, Hospitalization)
  Sender: FDA-Public Use
  Company Number: None

PATIENT
  Age: 41 Year
  Sex: Male
  Weight: 73 kg

DRUGS (7)
  1. ZOMETA [Suspect]
     Indication: BRAIN NEOPLASM
     Dosage: 4MG Q12 WEEKS IV
     Route: 042
     Dates: start: 20060802
  2. ZOMETA [Suspect]
     Indication: BRAIN NEOPLASM
     Dosage: 4MG Q12 WEEKS IV
     Route: 042
     Dates: start: 20061031
  3. ZOMETA [Suspect]
     Indication: BRAIN NEOPLASM
     Dosage: 4MG Q12 WEEKS IV
     Route: 042
     Dates: start: 20070207
  4. ZOMETA [Suspect]
     Indication: BRAIN NEOPLASM
     Dosage: 4MG Q12 WEEKS IV
     Route: 042
     Dates: start: 20070504
  5. DILANTIN KAPSEAL [Concomitant]
  6. NEXIUM [Concomitant]
  7. DECADRON [Concomitant]

REACTIONS (6)
  - DEPRESSED LEVEL OF CONSCIOUSNESS [None]
  - DISEASE PROGRESSION [None]
  - GLIOBLASTOMA MULTIFORME [None]
  - MALIGNANT NEOPLASM PROGRESSION [None]
  - SOMNOLENCE [None]
  - VENTRICULAR FAILURE [None]
